FAERS Safety Report 15968977 (Version 1)
Quarter: 2019Q1

REPORT INFORMATION
  Report Type: Spontaneous
  Country: ES (occurrence: ES)
  Receive Date: 20190215
  Receipt Date: 20190215
  Transmission Date: 20190418
  Serious: Yes (Hospitalization)
  Sender: FDA-Public Use
  Company Number: ES-MYLANLABS-2019M1013341

PATIENT
  Sex: Male

DRUGS (5)
  1. ARTEMETHER + LUMEFANTRINE [Suspect]
     Active Substance: ARTEMETHER\LUMEFANTRINE
     Indication: MALARIA
     Dosage: UNK
     Route: 065
     Dates: start: 201704
  2. QUININE [Suspect]
     Active Substance: QUININE
     Dosage: UNK
     Route: 065
     Dates: start: 201704
  3. QUININE [Suspect]
     Active Substance: QUININE
     Dosage: UNK
     Route: 065
     Dates: start: 201705
  4. ARTEMETHER + LUMEFANTRINE [Suspect]
     Active Substance: ARTEMETHER\LUMEFANTRINE
     Dosage: UNK
     Route: 065
     Dates: start: 201705
  5. QUININE [Suspect]
     Active Substance: QUININE
     Indication: PRODUCT USED FOR UNKNOWN INDICATION
     Dosage: UNK
     Dates: start: 201703

REACTIONS (5)
  - Flushing [Unknown]
  - Malaria [Unknown]
  - Treatment failure [Unknown]
  - Drug hypersensitivity [Unknown]
  - Abdominal discomfort [Unknown]
